FAERS Safety Report 17576990 (Version 1)
Quarter: 2020Q1

REPORT INFORMATION
  Report Type: Spontaneous
  Country: US (occurrence: US)
  Receive Date: 20200319
  Receipt Date: 20200319
  Transmission Date: 20200409
  Serious: No
  Sender: FDA-Public Use
  Company Number: None

PATIENT
  Sex: Female

DRUGS (1)
  1. PIQRAY [Suspect]
     Active Substance: ALPELISIB
     Indication: BREAST CANCER FEMALE
     Route: 048
     Dates: start: 20200305

REACTIONS (8)
  - Muscle spasms [None]
  - Sensitive skin [None]
  - Decreased appetite [None]
  - Heart rate decreased [None]
  - Heart rate increased [None]
  - Diarrhoea [None]
  - Pruritus [None]
  - Nausea [None]
